FAERS Safety Report 25131657 (Version 2)
Quarter: 2025Q2

REPORT INFORMATION
  Report Type: Spontaneous
  Country: US (occurrence: US)
  Receive Date: 20250327
  Receipt Date: 20250401
  Transmission Date: 20250716
  Serious: No
  Sender: NOVARTIS
  Company Number: US-002147023-NVSC2025US051167

PATIENT
  Sex: Female

DRUGS (1)
  1. RIBOCICLIB [Suspect]
     Active Substance: RIBOCICLIB
     Indication: Hormone receptor positive HER2 negative breast cancer
     Dosage: 400 MG, QD
     Route: 048

REACTIONS (1)
  - Hepatic enzyme increased [Unknown]
